FAERS Safety Report 5370557-5 (Version None)
Quarter: 2007Q2

REPORT INFORMATION
  Report Type: 
  Country: None (occurrence: None)
  Receive Date: 20070622
  Receipt Date: 20070607
  Transmission Date: 20071010
  Serious: Yes (Other)
  Sender: FDA-Public Use
  Company Number: 8024786

PATIENT
  Age: 49 Year
  Sex: Male

DRUGS (2)
  1. KEPPRA [Suspect]
     Indication: EPILEPSY
     Dosage: 1500 MG/D PO
     Route: 048
     Dates: start: 20061101
  2. DEPAKENE [Concomitant]

REACTIONS (1)
  - THROMBOCYTOPENIA [None]
